FAERS Safety Report 4764387-2 (Version None)
Quarter: 2005Q3

REPORT INFORMATION
  Report Type: 
  Country: None (occurrence: None)
  Receive Date: 20050907
  Receipt Date: 20050830
  Transmission Date: 20060218
  Serious: Yes (Other)
  Sender: FDA-Public Use
  Company Number: 2005102445

PATIENT
  Age: 61 Year
  Sex: Female

DRUGS (2)
  1. GENOTROPIN [Suspect]
     Indication: OFF LABEL USE
     Dosage: 0.3 MG (5.3 MG, DAILY)
     Dates: start: 20050608
  2. PURAN T4 (LEVOTHYROXINE SODIUM) [Concomitant]

REACTIONS (3)
  - BLOOD PRESSURE DECREASED [None]
  - DIZZINESS [None]
  - LABYRINTHITIS [None]
